FAERS Safety Report 20945011 (Version 1)
Quarter: 2022Q2

REPORT INFORMATION
  Report Type: Spontaneous
  Country: US (occurrence: None)
  Receive Date: 20220610
  Receipt Date: 20220610
  Transmission Date: 20220721
  Serious: Yes (Other)
  Sender: FDA-Public Use
  Company Number: 2022A209772

PATIENT
  Age: 71 Year
  Sex: Female
  Weight: 93 kg

DRUGS (1)
  1. PULMICORT FLEXHALER [Suspect]
     Active Substance: BUDESONIDE
     Indication: Asthma
     Route: 055

REACTIONS (17)
  - Breast cancer [Recovered/Resolved]
  - Sinusitis [Recovered/Resolved]
  - Pyrexia [Recovered/Resolved]
  - Productive cough [Recovered/Resolved]
  - Cough [Not Recovered/Not Resolved]
  - Oropharyngeal pain [Unknown]
  - Rheumatoid arthritis [Not Recovered/Not Resolved]
  - Hepatic enzyme abnormal [Recovered/Resolved]
  - Glaucoma [Not Recovered/Not Resolved]
  - Macular degeneration [Not Recovered/Not Resolved]
  - Medication error [Unknown]
  - Product use issue [Unknown]
  - Nasal discharge discolouration [Unknown]
  - Device use issue [Unknown]
  - Increased upper airway secretion [Unknown]
  - Drug dose omission by device [Unknown]
  - Device malfunction [Unknown]

NARRATIVE: CASE EVENT DATE: 20180101
